FAERS Safety Report 12957778 (Version 4)
Quarter: 2017Q2

REPORT INFORMATION
  Report Type: Spontaneous
  Country: FR (occurrence: FR)
  Receive Date: 20161118
  Receipt Date: 20170531
  Transmission Date: 20170830
  Serious: Yes (Death, Congenital Anomaly, Other)
  Sender: FDA-Public Use
  Company Number: FR-ABBVIE-16P-056-1786083-00

PATIENT
  Sex: Female

DRUGS (8)
  1. TOBI [Suspect]
     Active Substance: TOBRAMYCIN
     Indication: MATERNAL EXPOSURE DURING PREGNANCY
     Dosage: 300MG/5ML
     Route: 064
  2. CREON [Suspect]
     Active Substance: PANCRELIPASE AMYLASE\PANCRELIPASE LIPASE\PANCRELIPASE PROTEASE
     Indication: MATERNAL EXPOSURE DURING PREGNANCY
     Route: 064
  3. PARIET [Suspect]
     Active Substance: RABEPRAZOLE SODIUM
     Indication: MATERNAL EXPOSURE DURING PREGNANCY
     Route: 064
  4. ZITHROMAX [Suspect]
     Active Substance: AZITHROMYCIN DIHYDRATE
     Indication: MATERNAL EXPOSURE DURING PREGNANCY
     Route: 064
  5. SINGULAIR [Suspect]
     Active Substance: MONTELUKAST SODIUM
     Indication: MATERNAL EXPOSURE DURING PREGNANCY
     Route: 064
  6. ORELOX [Suspect]
     Active Substance: CEFPODOXIME
     Indication: MATERNAL EXPOSURE DURING PREGNANCY
     Route: 064
  7. VENTILASTIN [Suspect]
     Active Substance: ALBUTEROL SULFATE
     Indication: MATERNAL EXPOSURE DURING PREGNANCY
     Route: 064
  8. AERIUS [Suspect]
     Active Substance: DESLORATADINE
     Indication: MATERNAL EXPOSURE DURING PREGNANCY
     Route: 064

REACTIONS (4)
  - Abortion spontaneous [Fatal]
  - Foetal growth restriction [Fatal]
  - Foetal death [Fatal]
  - Foetal exposure during pregnancy [Unknown]

NARRATIVE: CASE EVENT DATE: 2014
